FAERS Safety Report 11235981 (Version 2)
Quarter: 2015Q3

REPORT INFORMATION
  Report Type: Spontaneous
  Country: ES (occurrence: ES)
  Receive Date: 20150702
  Receipt Date: 20150706
  Transmission Date: 20151125
  Serious: Yes (Death, Hospitalization, Other)
  Sender: FDA-Public Use
  Company Number: ES-GILEAD-2015-0161468

PATIENT
  Age: 65 Year
  Sex: Female

DRUGS (7)
  1. HARVONI [Suspect]
     Active Substance: LEDIPASVIR\SOFOSBUVIR
     Indication: HEPATITIS C
     Dosage: UNK
     Route: 065
     Dates: start: 20150521
  2. RIBAVIRIN. [Concomitant]
     Active Substance: RIBAVIRIN
     Indication: HEPATITIS C
     Dosage: UNK
     Dates: start: 20150521
  3. SEGURIL [Concomitant]
     Active Substance: FUROSEMIDE
  4. SUMIAL [Concomitant]
     Active Substance: PROPRANOLOL HYDROCHLORIDE
  5. RIFAXIMIN [Concomitant]
     Active Substance: RIFAXIMIN
  6. SPIRONOLACTONE. [Concomitant]
     Active Substance: SPIRONOLACTONE
  7. LANTUS [Concomitant]
     Active Substance: INSULIN GLARGINE

REACTIONS (12)
  - Hepatic failure [Unknown]
  - Renal failure [Unknown]
  - Septic shock [Fatal]
  - Multi-organ failure [Fatal]
  - Acute hepatic failure [Fatal]
  - Hyponatraemia [Unknown]
  - Ascites [Unknown]
  - Pyrexia [Unknown]
  - Lactic acidosis [Unknown]
  - Cellulitis [Unknown]
  - Hepatic cirrhosis [Fatal]
  - Clostridium difficile colitis [Recovered/Resolved]

NARRATIVE: CASE EVENT DATE: 20150531
